FAERS Safety Report 8539098-8 (Version None)
Quarter: 2012Q3

REPORT INFORMATION
  Report Type: 
  Country: None (occurrence: None)
  Receive Date: 20120726
  Receipt Date: 20120725
  Transmission Date: 20120928
  Serious: Yes (Disabling, Other)
  Sender: FDA-Public Use
  Company Number: PHEH2009US16962

PATIENT
  Sex: Female

DRUGS (19)
  1. CHLORHEXIDINE GLUCONATE [Concomitant]
  2. CHEMOTHERAPEUTICS [Concomitant]
  3. ZOMETA [Suspect]
     Indication: MULTIPLE MYELOMA
     Dates: end: 20081107
  4. ASPIRIN [Concomitant]
     Dosage: 81 MG, PER DAY
  5. PENICILLIN VK [Concomitant]
     Route: 048
  6. ALKERAN [Concomitant]
     Dosage: 6 MG, DAILY FOR 7 DAYS EVERY 6 WEEKS
  7. IBUPROFEN [Concomitant]
  8. THALIDOMIDE [Concomitant]
     Dosage: 50 MG, DAILY
  9. AMLODIPINE BESYLATE [Concomitant]
     Dosage: 5 MG, DAILY
  10. SENNACOTS [Concomitant]
  11. DILAUDID [Concomitant]
  12. TRAMADOL HYDROCHLORIDE [Concomitant]
     Route: 048
  13. NAPROXEN [Concomitant]
     Route: 048
  14. AMOX-CLAV [Concomitant]
     Route: 048
  15. OXYCODONE HCL [Concomitant]
     Route: 048
  16. HEP-LOCK [Concomitant]
  17. FENTANYL [Concomitant]
  18. METHYLPREDNISOLONE [Concomitant]
  19. HYDROCODONE [Concomitant]
     Route: 048

REACTIONS (58)
  - ANHEDONIA [None]
  - DENTURE WEARER [None]
  - RENAL DISORDER [None]
  - RENAL ARTERY ARTERIOSCLEROSIS [None]
  - POST HERPETIC NEURALGIA [None]
  - MITRAL VALVE INCOMPETENCE [None]
  - LOSS OF CONSCIOUSNESS [None]
  - HYPOAESTHESIA [None]
  - HUMERUS FRACTURE [None]
  - GASTROINTESTINAL HAEMORRHAGE [None]
  - HYPERTENSION [None]
  - NEUROPATHY PERIPHERAL [None]
  - CHEST PAIN [None]
  - INTERVERTEBRAL DISC SPACE NARROWING [None]
  - BONE LESION [None]
  - PRIMARY SEQUESTRUM [None]
  - HERPES ZOSTER [None]
  - CARDIOMEGALY [None]
  - MONOCLONAL GAMMOPATHY [None]
  - PAIN IN JAW [None]
  - EXCORIATION [None]
  - UPPER LIMB FRACTURE [None]
  - ANAEMIA [None]
  - OESOPHAGITIS [None]
  - BONE FRAGMENTATION [None]
  - HAEMORRHAGE [None]
  - INJURY [None]
  - RENAL ARTERY STENOSIS [None]
  - OSTEOPENIA [None]
  - FATIGUE [None]
  - CONSTIPATION [None]
  - OSTEOPOROSIS [None]
  - ANXIETY [None]
  - SLEEP APNOEA SYNDROME [None]
  - EMPHYSEMA [None]
  - SINUS DISORDER [None]
  - PAIN [None]
  - EXPOSED BONE IN JAW [None]
  - BRONCHITIS [None]
  - TRICUSPID VALVE INCOMPETENCE [None]
  - KYPHOSIS [None]
  - NIGHT SWEATS [None]
  - PAIN IN EXTREMITY [None]
  - DIZZINESS [None]
  - HAEMORRHOIDS [None]
  - HIATUS HERNIA [None]
  - JOINT DISLOCATION [None]
  - PARAESTHESIA [None]
  - COELIAC DISEASE [None]
  - MULTIPLE MYELOMA [None]
  - OSTEONECROSIS OF JAW [None]
  - LOOSE TOOTH [None]
  - FALL [None]
  - RADIUS FRACTURE [None]
  - VAGINAL HAEMORRHAGE [None]
  - ABDOMINAL DISCOMFORT [None]
  - HYPERKERATOSIS [None]
  - GASTROOESOPHAGEAL REFLUX DISEASE [None]
